FAERS Safety Report 7616699-2 (Version None)
Quarter: 2011Q3

REPORT INFORMATION
  Report Type: 
  Country: None (occurrence: None)
  Receive Date: 20110717
  Receipt Date: 20110708
  Transmission Date: 20111222
  Serious: Yes (Hospitalization)
  Sender: FDA-Public Use
  Company Number: US-BRISTOL-MYERS SQUIBB COMPANY-15889934

PATIENT
  Age: 61 Year
  Sex: Female
  Weight: 132 kg

DRUGS (3)
  1. CARBOPLATIN [Suspect]
     Indication: ENDOMETRIAL CANCER
     Dosage: AUC=6,5 OVER 30MIN ON DAY 1X6 CYCLES
     Route: 042
     Dates: start: 20101221
  2. RHUMAB-VEGF [Suspect]
     Indication: ENDOMETRIAL CANCER
     Dosage: OVER 30-90 MIN ON DAY 1X6 CYCLES,1987MG
     Route: 042
     Dates: start: 20101221
  3. IXEMPRA KIT [Suspect]
     Indication: ENDOMETRIAL CANCER
     Dosage: 710428,OVER 1HR ON DAY 1X6 CYCLES,25MG,60MG
     Route: 042
     Dates: start: 20101221

REACTIONS (8)
  - NEUTROPHIL COUNT DECREASED [None]
  - HYPOKALAEMIA [None]
  - SINUS BRADYCARDIA [None]
  - WHITE BLOOD CELL COUNT DECREASED [None]
  - URINARY TRACT INFECTION [None]
  - PLATELET COUNT DECREASED [None]
  - DEHYDRATION [None]
  - HYPOCALCAEMIA [None]
